FAERS Safety Report 9879115 (Version 2)
Quarter: 2014Q2

REPORT INFORMATION
  Report Type: Report from Study
  Country: CA (occurrence: CA)
  Receive Date: 20140206
  Receipt Date: 20140429
  Transmission Date: 20141212
  Serious: Yes (Hospitalization, Other)
  Sender: FDA-Public Use
  Company Number: CA-ABBVIE-14P-028-1196384-00

PATIENT
  Age: 52 Year
  Sex: Female
  Weight: 52.21 kg

DRUGS (5)
  1. HUMIRA [Suspect]
     Indication: RHEUMATOID ARTHRITIS
     Route: 058
     Dates: start: 20090416, end: 2013
  2. HUMIRA [Suspect]
     Route: 058
     Dates: start: 2013
  3. CELEBREX [Concomitant]
     Indication: PRODUCT USED FOR UNKNOWN INDICATION
  4. ARAVA [Concomitant]
     Indication: PRODUCT USED FOR UNKNOWN INDICATION
  5. UNKNOWN ANTI-INFLAMMATORY [Concomitant]
     Indication: ARTHRITIS

REACTIONS (5)
  - Device material issue [Unknown]
  - Surgery [Recovered/Resolved]
  - Device material issue [Recovered/Resolved]
  - Hip arthroplasty [Recovered/Resolved]
  - Cyst [Unknown]
